FAERS Safety Report 14506563 (Version 1)
Quarter: 2018Q1

REPORT INFORMATION
  Report Type: Spontaneous
  Country: US (occurrence: US)
  Receive Date: 20180208
  Receipt Date: 20180208
  Transmission Date: 20180509
  Serious: Yes (Other)
  Sender: FDA-Public Use
  Company Number: US-MAYNE PHARMA-2018MYN000188

PATIENT

DRUGS (3)
  1. NORTRIPTYLINE HYDROCHLORIDE. [Suspect]
     Active Substance: NORTRIPTYLINE HYDROCHLORIDE
     Indication: HEADACHE
     Dosage: UNK
     Route: 048
  2. NORTRIPTYLINE HYDROCHLORIDE. [Suspect]
     Active Substance: NORTRIPTYLINE HYDROCHLORIDE
     Dosage: 100 MG, PRN
     Route: 048
     Dates: start: 20171202
  3. ASPIRIN                            /00002701/ [Suspect]
     Active Substance: ASPIRIN
     Dosage: 81 MG, QD
     Route: 048

REACTIONS (6)
  - Increased tendency to bruise [Unknown]
  - Surgery [Unknown]
  - Drug ineffective for unapproved indication [Unknown]
  - Product quality issue [Unknown]
  - Dry skin [Unknown]
  - Skin injury [Unknown]

NARRATIVE: CASE EVENT DATE: 201712
